FAERS Safety Report 7709919-7 (Version None)
Quarter: 2011Q3

REPORT INFORMATION
  Report Type: 
  Country: None (occurrence: None)
  Receive Date: 20110825
  Receipt Date: 20110816
  Transmission Date: 20111222
  Serious: Yes (Hospitalization)
  Sender: FDA-Public Use
  Company Number: GB-EISAI INC-E2090-01720-SPO-GB

PATIENT
  Age: 47 Year
  Sex: Female

DRUGS (6)
  1. ZONEGRAN [Suspect]
     Indication: EPILEPSY
     Route: 048
     Dates: end: 20110814
  2. KEPPRA [Concomitant]
     Indication: EPILEPSY
     Route: 048
  3. VALPROATE SODIUM [Concomitant]
     Indication: EPILEPSY
     Route: 048
  4. DAKTACORT CREAM [Concomitant]
     Route: 061
  5. ZONEGRAN [Suspect]
     Route: 048
     Dates: start: 20110816
  6. VENLAFAXINE [Concomitant]
     Route: 048

REACTIONS (1)
  - DRUG WITHDRAWAL CONVULSIONS [None]
